FAERS Safety Report 20179216 (Version 1)
Quarter: 2021Q4

REPORT INFORMATION
  Report Type: Spontaneous
  Country: US (occurrence: US)
  Receive Date: 20211214
  Receipt Date: 20211214
  Transmission Date: 20220304
  Serious: No
  Sender: FDA-Public Use
  Company Number: US-BIOGEN-2020BI00947066

PATIENT
  Age: 56 Year
  Sex: Female

DRUGS (2)
  1. TYSABRI [Suspect]
     Active Substance: NATALIZUMAB
     Indication: Multiple sclerosis
     Dosage: 300MG/15ML
     Route: 065
     Dates: start: 20181017, end: 20210630
  2. TYSABRI [Suspect]
     Active Substance: NATALIZUMAB
     Dosage: 300MG/15ML
     Route: 065
     Dates: start: 20140929, end: 20160517

REACTIONS (3)
  - Influenza like illness [Recovered/Resolved]
  - Depression [Unknown]
  - Pneumonia [Unknown]

NARRATIVE: CASE EVENT DATE: 20201224
